FAERS Safety Report 23227511 (Version 1)
Quarter: 2023Q4

REPORT INFORMATION
  Report Type: Spontaneous
  Country: CN (occurrence: None)
  Receive Date: 20231124
  Receipt Date: 20231124
  Transmission Date: 20240110
  Serious: Yes (Other)
  Sender: FDA-Public Use
  Company Number: 2023A262962

PATIENT
  Age: 67 Year
  Sex: Male

DRUGS (2)
  1. TAGRISSO [Suspect]
     Active Substance: OSIMERTINIB
     Indication: Lung neoplasm malignant
     Route: 048
  2. SAVOLITINIB [Concomitant]
     Active Substance: SAVOLITINIB

REACTIONS (2)
  - Nucleic acid test positive [Unknown]
  - Drug resistance [Unknown]

NARRATIVE: CASE EVENT DATE: 20231001
